FAERS Safety Report 8177903-8 (Version None)
Quarter: 2012Q1

REPORT INFORMATION
  Report Type: 
  Country: None (occurrence: None)
  Receive Date: 20120301
  Receipt Date: 20120223
  Transmission Date: 20120608
  Serious: Yes (Other)
  Sender: FDA-Public Use
  Company Number: US-PFIZER INC-2012049201

PATIENT
  Age: 21 Year
  Sex: Female

DRUGS (5)
  1. GENTAMICIN [Suspect]
  2. POLYMYXIN [Suspect]
  3. TOBRAMYCIN [Suspect]
     Dosage: 7 MG/KG DAILY
  4. RIFAMPICIN [Suspect]
  5. NEOMYCIN SULFATE [Suspect]

REACTIONS (1)
  - BARTTER'S SYNDROME [None]
